FAERS Safety Report 23009792 (Version 3)
Quarter: 2023Q4

REPORT INFORMATION
  Report Type: Report from Study
  Country: US (occurrence: US)
  Receive Date: 20230929
  Receipt Date: 20231003
  Transmission Date: 20240110
  Serious: Yes (Other)
  Sender: FDA-Public Use
  Company Number: US-002147023-NVSC2023US210383

PATIENT
  Sex: Female

DRUGS (1)
  1. VIJOICE [Suspect]
     Active Substance: ALPELISIB
     Indication: PIK3CA related overgrowth spectrum
     Dosage: 250 MG, QD
     Route: 048
     Dates: start: 20230911

REACTIONS (9)
  - Suicidal ideation [Unknown]
  - Haemorrhage [Unknown]
  - Malaise [Unknown]
  - Tumour pain [Unknown]
  - Depression [Unknown]
  - Post-traumatic stress disorder [Unknown]
  - Neoplasm [Unknown]
  - Nausea [Unknown]
  - Treatment failure [Unknown]
